FAERS Safety Report 4633443-1 (Version None)
Quarter: 2005Q2

REPORT INFORMATION
  Report Type: 
  Country: None (occurrence: None)
  Receive Date: 20050408
  Receipt Date: 20050326
  Transmission Date: 20051028
  Serious: Yes (Hospitalization, Other)
  Sender: FDA-Public Use
  Company Number: 25

PATIENT
  Age: 11 Year
  Sex: Female
  Weight: 72.1219 kg

DRUGS (1)
  1. DYNACIN 100 MG TABLETS [Suspect]
     Indication: ACNE
     Dosage: 100 MG BID PO
     Route: 048
     Dates: start: 20050302, end: 20050314

REACTIONS (8)
  - BENIGN INTRACRANIAL HYPERTENSION [None]
  - DEHYDRATION [None]
  - DIPLOPIA [None]
  - HEADACHE [None]
  - HYPOAESTHESIA [None]
  - PAPILLOEDEMA [None]
  - STRABISMUS [None]
  - VOMITING [None]
